FAERS Safety Report 8183337-2 (Version None)
Quarter: 2012Q1

REPORT INFORMATION
  Report Type: 
  Country: None (occurrence: None)
  Receive Date: 20120305
  Receipt Date: 20120228
  Transmission Date: 20120608
  Serious: No
  Sender: FDA-Public Use
  Company Number: US-BAYER-2012-020379

PATIENT
  Age: 91 Year
  Sex: Female
  Weight: 52 kg

DRUGS (11)
  1. LOVASTATIN [Concomitant]
  2. CALCIUM [Concomitant]
  3. ASCORBIC ACID [Concomitant]
  4. BYSTOLIC [Concomitant]
  5. EXFORGE [Concomitant]
  6. SPIRIVA [Concomitant]
  7. ISOSORBIDE DINITRATE [Concomitant]
  8. MULTI-VITAMINS [Concomitant]
  9. UNKNOWN [Concomitant]
  10. ENABLEX [Concomitant]
  11. ALEVE (CAPLET) [Suspect]

REACTIONS (1)
  - NO ADVERSE EVENT [None]
